FAERS Safety Report 5941047-3 (Version None)
Quarter: 2008Q4

REPORT INFORMATION
  Report Type: 
  Country: None (occurrence: None)
  Receive Date: 20081104
  Receipt Date: 20081031
  Transmission Date: 20090506
  Serious: Yes (Hospitalization, Other)
  Sender: FDA-Public Use
  Company Number: JP-B.I. PHARMACEUTICALS,INC./RIDGEFIELD-2008-BP-05315NB

PATIENT
  Sex: Male
  Weight: 50.6 kg

DRUGS (6)
  1. MICARDIS [Suspect]
     Indication: HYPERTENSION
     Dosage: 40MG
     Route: 048
     Dates: start: 20080328, end: 20080404
  2. MICARDIS [Suspect]
     Indication: DIABETIC NEPHROPATHY
  3. HALTHROW (TAMSULOSIN HYDROCHLORIDE) [Concomitant]
     Indication: URINARY RETENTION
     Dosage: .2MG
     Route: 048
     Dates: start: 20080328, end: 20080404
  4. UBRETID [Concomitant]
     Indication: URINARY RETENTION
     Dosage: 10MG
     Route: 048
     Dates: start: 20080326, end: 20080404
  5. GASMOTIN [Concomitant]
     Indication: ANOREXIA
     Dosage: 15MG
     Route: 048
     Dates: start: 20080328, end: 20080404
  6. METHYCOBIDE [Concomitant]
     Indication: DIABETIC NEUROPATHY
     Dosage: 1500MCG
     Route: 048
     Dates: start: 20080328, end: 20080404

REACTIONS (2)
  - ACUTE MYOCARDIAL INFARCTION [None]
  - INTERSTITIAL LUNG DISEASE [None]
